FAERS Safety Report 14466287 (Version 1)
Quarter: 2018Q1

REPORT INFORMATION
  Report Type: Other
  Country: DE (occurrence: DE)
  Receive Date: 20180131
  Receipt Date: 20180131
  Transmission Date: 20180509
  Serious: Yes (Other)
  Sender: FDA-Public Use
  Company Number: DE-GLENMARK PHARMACEUTICALS-2018GMK031282

PATIENT

DRUGS (6)
  1. L-THYROXIN [Concomitant]
     Active Substance: LEVOTHYROXINE SODIUM
     Indication: HYPOTHYROIDISM
     Dosage: 50 ?G, QD 25-50 ?G/D
     Route: 064
     Dates: start: 20161101, end: 20170806
  2. AFLURIA [Concomitant]
     Active Substance: INFLUENZA VIRUS VACCINE TRIVALENT TYPE A+B AFLURIA
     Indication: IMMUNISATION
     Dosage: UNK
     Route: 064
     Dates: start: 20170127, end: 20170127
  3. OXCARBAZEPINE. [Suspect]
     Active Substance: OXCARBAZEPINE
     Indication: PRODUCT USED FOR UNKNOWN INDICATION
     Dosage: 2250 MG, QD INITIAL 1650MG/D, DOSAGE INCREASE TO 2250MG/D FROM WEEK 19
     Route: 064
     Dates: start: 20161101, end: 20170806
  4. KEPPRA [Suspect]
     Active Substance: LEVETIRACETAM
     Indication: PARTIAL SEIZURES
     Dosage: 3500 MG, QD
     Route: 064
     Dates: start: 20170314, end: 20170806
  5. LORAZEPAM. [Concomitant]
     Active Substance: LORAZEPAM
     Indication: PARTIAL SEIZURES
     Dosage: 1 MG, QD, ONLY TWICE
     Route: 064
     Dates: start: 20161226, end: 20170214
  6. FOLSAN [Concomitant]
     Active Substance: FOLIC ACID
     Indication: PROPHYLAXIS OF NEURAL TUBE DEFECT
     Dosage: 5 MG, QD, DOSAGE REDUCTION TO 0.8 MG/D FROM WEEK 10
     Route: 064
     Dates: start: 20161101, end: 20170806

REACTIONS (3)
  - Convulsion neonatal [Recovered/Resolved]
  - Hyponatraemia [Recovered/Resolved]
  - Foetal exposure during pregnancy [Unknown]

NARRATIVE: CASE EVENT DATE: 20170806
